FAERS Safety Report 7506205-5 (Version None)
Quarter: 2011Q2

REPORT INFORMATION
  Report Type: 
  Country: None (occurrence: None)
  Receive Date: 20110526
  Receipt Date: 20110511
  Transmission Date: 20111010
  Serious: Yes (Hospitalization)
  Sender: FDA-Public Use
  Company Number: JP-JNJFOC-20110406621

PATIENT
  Age: 23 Year
  Sex: Male
  Weight: 40.5 kg

DRUGS (6)
  1. INFLIXIMAB, RECOMBINANT [Suspect]
     Route: 042
  2. PREDNISOLONE [Suspect]
  3. STEROIDS NOS [Concomitant]
  4. INFLIXIMAB, RECOMBINANT [Suspect]
     Indication: CROHN'S DISEASE
     Route: 042
  5. PREDNISOLONE [Suspect]
     Indication: CROHN'S DISEASE
  6. PREDNISOLONE [Suspect]

REACTIONS (2)
  - NOCARDIOSIS [None]
  - CANDIDIASIS [None]
